FAERS Safety Report 18524198 (Version 1)
Quarter: 2020Q4

REPORT INFORMATION
  Report Type: Spontaneous
  Country: IT (occurrence: IT)
  Receive Date: 20201119
  Receipt Date: 20201119
  Transmission Date: 20210114
  Serious: Yes (Hospitalization)
  Sender: FDA-Public Use
  Company Number: IT-TEVA-2020-IT-1838457

PATIENT
  Age: 54 Year
  Sex: Male

DRUGS (10)
  1. LEDERFOLIN 7,5 MG COMPRESSE [Concomitant]
     Dosage: UNIT DOSE : 1 DOSAGE FORMS
     Route: 048
  2. NORVASC [Concomitant]
     Active Substance: AMLODIPINE BESYLATE
     Dosage: UNIT DOSE : 1 DOSAGE FORMS
     Route: 048
  3. TAVOR (LORAZEPAM) [Suspect]
     Active Substance: LORAZEPAM
     Indication: BIPOLAR DISORDER
     Dosage: UNIT DOSE  : 5 MG
     Route: 048
     Dates: start: 20181207, end: 20181207
  4. DEPAKIN [Concomitant]
     Active Substance: VALPROATE SODIUM
     Dosage: UNIT DOSE : 2 DOSAGE FORMS
     Route: 048
  5. ETILTOX 200 MG COMPRESSE [Concomitant]
     Active Substance: DISULFIRAM
     Dosage: UNIT DOSE : 1 DOSAGE FORMS
     Route: 048
  6. OMNIC 0,4 MG, CAPSULE RIGIDE A RILASCIO MODIFICATO [Concomitant]
     Active Substance: TAMSULOSIN
     Dosage: UNIT DOSE : 1 DOSAGE FORMS
     Route: 048
  7. OLANZAPINE. [Suspect]
     Active Substance: OLANZAPINE
     Indication: BIPOLAR DISORDER
     Dosage: UNIT DOSE : 20 MG
     Route: 048
     Dates: start: 20181207, end: 20181207
  8. GABAPENTIN. [Concomitant]
     Active Substance: GABAPENTIN
     Dosage: UNIT DOSE : 1200 MG
     Route: 048
  9. TALOFEN [Suspect]
     Active Substance: PROMAZINE HYDROCHLORIDE
     Indication: BIPOLAR DISORDER
     Dosage: UNIT DOSE : 10 GTT
     Route: 048
     Dates: start: 20181207, end: 20181207
  10. TRIATEC [RAMIPRIL] [Concomitant]
     Active Substance: RAMIPRIL
     Dosage: UNIT DOSE : 2 DOSAGE FORMS
     Route: 048

REACTIONS (5)
  - Fall [Recovering/Resolving]
  - Drug abuse [Recovering/Resolving]
  - Dysarthria [Recovering/Resolving]
  - Amnesia [Recovering/Resolving]
  - Sopor [Recovering/Resolving]

NARRATIVE: CASE EVENT DATE: 20181207
